FAERS Safety Report 15192013 (Version 1)
Quarter: 2018Q3

REPORT INFORMATION
  Report Type: Spontaneous
  Country: DE (occurrence: DE)
  Receive Date: 20180724
  Receipt Date: 20180724
  Transmission Date: 20181010
  Serious: Yes (Hospitalization)
  Sender: FDA-Public Use
  Company Number: PHHY2018DE049117

PATIENT
  Age: 61 Year
  Sex: Female
  Weight: 113 kg

DRUGS (24)
  1. QUETIAPINE. [Suspect]
     Active Substance: QUETIAPINE
     Indication: PRODUCT USED FOR UNKNOWN INDICATION
     Dosage: 100 MG, QD
     Route: 048
  2. VITAMIN B [Concomitant]
     Active Substance: VITAMIN B
     Dosage: 4.8 MG, QD
     Route: 048
  3. VIANI [Concomitant]
     Active Substance: FLUTICASONE PROPIONATE\SALMETEROL XINAFOATE
     Indication: PRODUCT USED FOR UNKNOWN INDICATION
     Dosage: 25 UG, BID
     Route: 055
  4. VIANI [Concomitant]
     Active Substance: FLUTICASONE PROPIONATE\SALMETEROL XINAFOATE
     Dosage: 125 UG, BID
     Route: 055
  5. CETEBE [Concomitant]
     Indication: PRODUCT USED FOR UNKNOWN INDICATION
     Dosage: 500 MG, QD
     Route: 048
  6. VITAMIN B [Concomitant]
     Active Substance: VITAMIN B
     Dosage: 18 MG, QD
     Route: 048
  7. PROPRANOLOL [Concomitant]
     Active Substance: PROPRANOLOL HYDROCHLORIDE
     Indication: PRODUCT USED FOR UNKNOWN INDICATION
     Dosage: 0.5 DF, UNK (40 MG OF 20 MG (HALF DOSE))
     Route: 048
  8. FLUVOXAMINE [Suspect]
     Active Substance: FLUVOXAMINE
     Indication: OBSESSIVE-COMPULSIVE DISORDER
     Dosage: 0.5 DF, QD (50 MG)
     Route: 048
  9. LITHIUM. [Suspect]
     Active Substance: LITHIUM
     Indication: PRODUCT USED FOR UNKNOWN INDICATION
     Dosage: 12.2 MMOL, TID
     Route: 048
  10. VITAMIN B [Concomitant]
     Active Substance: VITAMIN B
     Indication: PRODUCT USED FOR UNKNOWN INDICATION
     Dosage: 4.2 MG, QD
     Route: 048
  11. VITAMIN B [Concomitant]
     Active Substance: VITAMIN B
     Dosage: 0.003 MG, QD
     Route: 048
  12. CODEINE [Concomitant]
     Active Substance: CODEINE
     Indication: PRODUCT USED FOR UNKNOWN INDICATION
     Dosage: UNK
     Route: 065
  13. BIPERIDEN [Concomitant]
     Active Substance: BIPERIDEN
     Indication: PRODUCT USED FOR UNKNOWN INDICATION
     Dosage: 4 MG, QD
     Route: 065
  14. HALOPERIDOL. [Suspect]
     Active Substance: HALOPERIDOL
     Indication: PRODUCT USED FOR UNKNOWN INDICATION
     Dosage: 20 MG, QD (0.5?0?0.5?0)
     Route: 048
  15. PHYTONOCTU [Concomitant]
     Dosage: 70 MG, QD (60|70|70 MG, 0?0?0?3, TABLETTEN)
     Route: 048
  16. VITAMIN B [Concomitant]
     Active Substance: VITAMIN B
     Dosage: 6 MG, QD
     Route: 048
  17. VITAMIN B [Concomitant]
     Active Substance: VITAMIN B
     Dosage: 36 MG, QD
     Route: 048
  18. PHYTONOCTU [Concomitant]
     Indication: PRODUCT USED FOR UNKNOWN INDICATION
     Dosage: 60 MG, QD, (60|70|70 MG, 0?0?0?3, TABLETTEN)
     Route: 048
  19. PHYTONOCTU [Concomitant]
     Dosage: 70 MG, QD, (60|70|70 MG, 0?0?0?3, TABLETTEN)
     Route: 048
  20. PROMETHAZINE [Suspect]
     Active Substance: PROMETHAZINE\PROMETHAZINE HYDROCHLORIDE
     Indication: PRODUCT USED FOR UNKNOWN INDICATION
     Dosage: 50 MG, QD (25 MG, 1?0.5?0.5?0, TABLETTEN)
     Route: 048
  21. LEVOTHYROXINE. [Concomitant]
     Active Substance: LEVOTHYROXINE
     Indication: PRODUCT USED FOR UNKNOWN INDICATION
     Dosage: 75 G, QD
     Route: 048
  22. VITAMIN B [Concomitant]
     Active Substance: VITAMIN B
     Dosage: 0.003 MG, QD
     Route: 048
  23. VITAMIN B [Concomitant]
     Active Substance: VITAMIN B
     Dosage: 0.4 MG, QD
     Route: 048
  24. RAMIPRIL. [Concomitant]
     Active Substance: RAMIPRIL
     Indication: PRODUCT USED FOR UNKNOWN INDICATION
     Dosage: 0.5 DF, UNK, HALF DOSE OF 5 MG
     Route: 048

REACTIONS (8)
  - Hemiparesis [Unknown]
  - Dysarthria [Unknown]
  - General physical health deterioration [Unknown]
  - Toxicity to various agents [Unknown]
  - Diarrhoea [Unknown]
  - Renal impairment [Unknown]
  - Schizophrenia [Unknown]
  - Medication error [Unknown]
